FAERS Safety Report 9215546 (Version 1)
Quarter: 2013Q2

REPORT INFORMATION
  Report Type: Spontaneous
  Country: JP (occurrence: JP)
  Receive Date: 20130407
  Receipt Date: 20130407
  Transmission Date: 20140414
  Serious: Yes (Life-Threatening, Hospitalization, Other)
  Sender: FDA-Public Use
  Company Number: JP-JNJFOC-20130201275

PATIENT
  Age: 26 Year
  Sex: Male
  Weight: 62 kg

DRUGS (4)
  1. REMICADE [Suspect]
     Indication: COLITIS ULCERATIVE
     Dosage: 14TH DOSE
     Route: 042
     Dates: start: 20121204
  2. REMICADE [Suspect]
     Indication: COLITIS ULCERATIVE
     Dosage: TOTAL NUMBER OF INFUSIONS: 1
     Route: 042
     Dates: start: 20110121
  3. PENTASA [Concomitant]
     Route: 048
     Dates: start: 20100817
  4. MIYA BM [Concomitant]
     Route: 048
     Dates: start: 20100930

REACTIONS (10)
  - Pneumonia moraxella [Recovered/Resolved]
  - Influenza [Recovered/Resolved]
  - Pneumonia streptococcal [Recovered/Resolved]
  - Acute respiratory distress syndrome [Unknown]
  - Septic shock [Unknown]
  - Disseminated intravascular coagulation [Unknown]
  - Pneumothorax [Unknown]
  - Infectious pleural effusion [Unknown]
  - Heart rate increased [Unknown]
  - Blood pressure decreased [Unknown]
